FAERS Safety Report 5944064-2 (Version None)
Quarter: 2008Q4

REPORT INFORMATION
  Report Type: 
  Country: None (occurrence: None)
  Receive Date: 20081106
  Receipt Date: 20081027
  Transmission Date: 20090506
  Serious: Yes (Death, Other)
  Sender: FDA-Public Use
  Company Number: JP-ABBOTT-08P-087-0485517-00

PATIENT
  Age: 62 Year
  Sex: Male

DRUGS (2)
  1. LEUPROLIDE ACETATE [Suspect]
     Indication: PROSTATE CANCER STAGE IV
     Route: 058
     Dates: start: 20080124, end: 20080124
  2. BICALUTAMIDE [Concomitant]
     Indication: PROSTATE CANCER STAGE IV
     Route: 048
     Dates: start: 20080124

REACTIONS (2)
  - METASTASES TO LIVER [None]
  - PROSTATE CANCER [None]
